FAERS Safety Report 4428439-9 (Version None)
Quarter: 2004Q3

REPORT INFORMATION
  Report Type: 
  Country: None (occurrence: None)
  Receive Date: 20040813
  Receipt Date: 20040803
  Transmission Date: 20050211
  Serious: Yes (Hospitalization)
  Sender: FDA-Public Use
  Company Number: 208023

PATIENT
  Age: 75 Year
  Sex: Male

DRUGS (11)
  1. MABTHERA (RITUXIMAB) CONC FOR SOLUTION FOR INFUSION [Suspect]
     Indication: DIFFUSE LARGE B-CELL LYMPHOMA
     Dosage: INTRAVENOUS
     Route: 042
     Dates: start: 20031022, end: 20040421
  2. CYCLOPHOSPHAMIDE [Suspect]
     Indication: DIFFUSE LARGE B-CELL LYMPHOMA
     Dosage: INTRAVENOUS
     Route: 042
     Dates: start: 20031023
  3. DOXORUBICIN HCL [Suspect]
     Indication: DIFFUSE LARGE B-CELL LYMPHOMA
     Dosage: INTRAVENOUS
     Route: 042
     Dates: start: 20031023
  4. VINCRISTINE [Suspect]
     Indication: DIFFUSE LARGE B-CELL LYMPHOMA
     Dosage: INTRAVENOUS
     Route: 042
     Dates: start: 20031023
  5. PREDNISONE TAB [Suspect]
     Indication: DIFFUSE LARGE B-CELL LYMPHOMA
     Dosage: ORAL
     Route: 048
     Dates: start: 20031023
  6. METHOTREXATE [Concomitant]
  7. LEVOTHYROXINE SODIUM [Concomitant]
  8. CAPTOPRIL [Concomitant]
  9. CONCOR (BISOPROLOL FUMARATE) [Concomitant]
  10. TIKLYD (TICLOPIDINE HDYROCHLORIDE) [Concomitant]
  11. PANTOZOL (PANTOPRAZOLE) [Concomitant]

REACTIONS (1)
  - PLEURAL EFFUSION [None]
